FAERS Safety Report 4382348-2 (Version None)
Quarter: 2004Q2

REPORT INFORMATION
  Report Type: 
  Country: None (occurrence: None)
  Receive Date: 20040622
  Receipt Date: 20040121
  Transmission Date: 20050107
  Serious: Yes (Hospitalization)
  Sender: FDA-Public Use
  Company Number: PHEH2004US01200

PATIENT
  Age: 55 Year
  Sex: Female
  Weight: 151 kg

DRUGS (9)
  1. GLEEVEC [Suspect]
     Indication: CHRONIC MYELOID LEUKAEMIA
     Dosage: 400 MG, BID
     Route: 048
     Dates: start: 20031006, end: 20040101
  2. GLEEVEC [Suspect]
     Dosage: 400 MG, QD
     Route: 048
     Dates: start: 20040201, end: 20040301
  3. GLEEVEC [Suspect]
     Dosage: 600 MG, QD
     Route: 048
     Dates: start: 20040301, end: 20040301
  4. GLEEVEC [Suspect]
     Dosage: 800 MG, QD
     Route: 048
     Dates: start: 20040301
  5. WARFARIN SODIUM [Concomitant]
     Indication: ARRHYTHMIA SUPRAVENTRICULAR
     Dosage: UNK, QD
     Route: 048
     Dates: end: 20040103
  6. DIGOXIN [Concomitant]
     Indication: ATRIAL FIBRILLATION
  7. FUROSEMIDE [Concomitant]
  8. POTASSIUM [Concomitant]
  9. ASPIRIN [Concomitant]
     Indication: ARRHYTHMIA SUPRAVENTRICULAR
     Dosage: 324 MG, QD
     Route: 048

REACTIONS (6)
  - ASPIRATION PLEURAL CAVITY [None]
  - CHEST PAIN [None]
  - DYSPNOEA [None]
  - HAEMOTHORAX [None]
  - NON-CARDIAC CHEST PAIN [None]
  - PLEURAL EFFUSION [None]
